FAERS Safety Report 13956247 (Version 3)
Quarter: 2018Q2

REPORT INFORMATION
  Report Type: Report from Study
  Country: None (occurrence: CA)
  Receive Date: 20170911
  Receipt Date: 20180413
  Transmission Date: 20180711
  Serious: Yes (Hospitalization, Other)
  Sender: FDA-Public Use
  Company Number: CA-ABBVIE-17K-028-2096784-00

PATIENT
  Sex: Female

DRUGS (2)
  1. HUMIRA [Suspect]
     Active Substance: ADALIMUMAB
     Indication: RHEUMATOID ARTHRITIS
     Dosage: STOPPED FOR SURGERY, KEPT DISCONTINUED DUE TO POST-SURGICAL INFECTION
     Route: 058
     Dates: start: 20110312, end: 201707
  2. HUMIRA [Suspect]
     Active Substance: ADALIMUMAB
     Dosage: STOPPED AS PATIENT WAS WAITING FOR INSTRUCTIONS FROM SURGEON
     Route: 058
     Dates: end: 201802

REACTIONS (3)
  - Post procedural infection [Unknown]
  - Back disorder [Not Recovered/Not Resolved]
  - Fracture [Not Recovered/Not Resolved]

NARRATIVE: CASE EVENT DATE: 2017
